FAERS Safety Report 22025289 (Version 1)
Quarter: 2023Q1

REPORT INFORMATION
  Report Type: Spontaneous
  Country: CZ (occurrence: CZ)
  Receive Date: 20230223
  Receipt Date: 20230223
  Transmission Date: 20230418
  Serious: Yes (Hospitalization, Other)
  Sender: FDA-Public Use
  Company Number: CZ-AMGEN-CZESP2023028905

PATIENT
  Age: 59 Year
  Sex: Female

DRUGS (1)
  1. KYPROLIS [Suspect]
     Active Substance: CARFILZOMIB
     Indication: Plasma cell myeloma
     Dosage: 20 MILLIGRAM/SQ. METER, (TOTAL DOSE38 MG)
     Route: 040
     Dates: start: 20230201, end: 20230202

REACTIONS (2)
  - Cardiomegaly [Unknown]
  - Pulmonary congestion [Unknown]

NARRATIVE: CASE EVENT DATE: 20230202
